FAERS Safety Report 9146004 (Version 2)
Quarter: 2013Q1

REPORT INFORMATION
  Report Type: Spontaneous
  Country: US (occurrence: None)
  Receive Date: 20130208
  Receipt Date: 20130311
  Transmission Date: 20140127
  Serious: Yes (Life-Threatening, Hospitalization)
  Sender: FDA-Public Use
  Company Number: 136104

PATIENT
  Age: 46 Year
  Sex: Male
  Weight: 66 kg

DRUGS (1)
  1. ETOPOSIDE [Suspect]
     Indication: NON-SMALL CELL LUNG CANCER STAGE III
     Route: 042
     Dates: start: 20120514

REACTIONS (10)
  - Dysphagia [None]
  - Pulmonary haemorrhage [None]
  - Aplasia pure red cell [None]
  - Pyrexia [None]
  - Pneumonitis [None]
  - Pulmonary artery stenosis [None]
  - Neoplasm progression [None]
  - Non-small cell lung cancer stage III [None]
  - Cough [None]
  - Regurgitation [None]
